FAERS Safety Report 10234347 (Version 2)
Quarter: 2014Q4

REPORT INFORMATION
  Report Type: Report from Study
  Country: DE (occurrence: DE)
  Receive Date: 20140612
  Receipt Date: 20141209
  Transmission Date: 20150528
  Serious: Yes (Hospitalization)
  Sender: FDA-Public Use
  Company Number: DE-ABBVIE-14P-062-1244722-00

PATIENT
  Age: 32 Year
  Sex: Female
  Weight: 52 kg

DRUGS (1)
  1. HUMIRA [Suspect]
     Active Substance: ADALIMUMAB
     Indication: PSORIASIS
     Route: 058
     Dates: start: 20140306

REACTIONS (2)
  - Lymphadenopathy [Not Recovered/Not Resolved]
  - Langerhans^ cell histiocytosis [Not Recovered/Not Resolved]

NARRATIVE: CASE EVENT DATE: 20140508
